FAERS Safety Report 9812821 (Version 1)
Quarter: 2014Q1

REPORT INFORMATION
  Report Type: Spontaneous
  Country: US (occurrence: US)
  Receive Date: 20140113
  Receipt Date: 20140113
  Transmission Date: 20141002
  Serious: No
  Sender: FDA-Public Use
  Company Number: US-PFIZER INC-2014008629

PATIENT
  Sex: Female

DRUGS (2)
  1. CELEBREX [Suspect]
     Indication: POSTOPERATIVE CARE
     Dosage: UNK
  2. CELEBREX [Suspect]
     Indication: ARTHRALGIA

REACTIONS (4)
  - Rash [Unknown]
  - Skin burning sensation [Unknown]
  - Pruritus [Unknown]
  - Drug ineffective [Unknown]
